FAERS Safety Report 5298837-2 (Version None)
Quarter: 2007Q2

REPORT INFORMATION
  Report Type: 
  Country: None (occurrence: None)
  Receive Date: 20070417
  Receipt Date: 20040908
  Transmission Date: 20071010
  Serious: No
  Sender: FDA-Public Use
  Company Number: US-AMGEN-US088104

PATIENT
  Sex: Female

DRUGS (10)
  1. SENSIPAR [Suspect]
     Indication: HYPERPARATHYROIDISM SECONDARY
     Dates: start: 20040601
  2. TUMS [Concomitant]
  3. CLONAZEPAM [Concomitant]
  4. PEPCID [Concomitant]
  5. LASIX [Concomitant]
  6. NEURONTIN [Concomitant]
  7. INSULIN [Concomitant]
  8. INSULIN LENTE [Concomitant]
  9. NEPHRO-VITE [Concomitant]
  10. COUMADIN [Concomitant]

REACTIONS (1)
  - HYPERPHOSPHATAEMIA [None]
